FAERS Safety Report 4753489-2 (Version None)
Quarter: 2005Q3

REPORT INFORMATION
  Report Type: 
  Country: None (occurrence: None)
  Receive Date: 20050824
  Receipt Date: 20050812
  Transmission Date: 20060218
  Serious: Yes (Disabling)
  Sender: FDA-Public Use
  Company Number: 2005116189

PATIENT
  Age: 28 Year
  Sex: Female
  Weight: 96.5 kg

DRUGS (21)
  1. LYRICA [Suspect]
     Indication: PAIN
     Dosage: 150 MG (75 MG, 2 IN 1 D), ORAL
     Route: 048
     Dates: start: 20050720, end: 20050728
  2. FLUOXETINE [Interacting]
  3. CITALOPRAM (CITALOPRAM) [Concomitant]
  4. DIHYDROCODEINE (DIHYDROCODEINE) [Concomitant]
  5. DEPO-PROVERA SUSPENSION/INJ [Concomitant]
  6. PROPRANOLOL [Concomitant]
  7. DOXAZOSIN (DOXAZOSIN [Concomitant]
  8. ZOLPIDEM TARTRATE [Concomitant]
  9. CALCIPOTRIOL (CALCIPOTRIOL) [Concomitant]
  10. LISINOPRIL [Concomitant]
  11. TACROLIMUS (TACROLIMUS) [Concomitant]
  12. ACYCLOVIR [Concomitant]
  13. COAL TAR (COAL TAR) [Concomitant]
  14. FUSIDIC ACID [Concomitant]
  15. AMITRIPTYLINE HCL [Concomitant]
  16. LANSOPRAZOLE [Concomitant]
  17. FUROSEMIDE [Concomitant]
  18. ETODOLAC [Concomitant]
  19. E45 ITCH RELIEF (LAURETH COMPOUNDS, UREA) [Concomitant]
  20. MICONAZOLE [Concomitant]
  21. CALCIPOTRIOL (CALCIPOTRIOL [Concomitant]

REACTIONS (3)
  - DISORIENTATION [None]
  - FEAR [None]
  - FORMICATION [None]
